FAERS Safety Report 5856934-4 (Version None)
Quarter: 2008Q3

REPORT INFORMATION
  Report Type: 
  Country: None (occurrence: None)
  Receive Date: 20080825
  Receipt Date: 20080815
  Transmission Date: 20090109
  Serious: Yes (Other)
  Sender: FDA-Public Use
  Company Number: US-WYE-H05607608

PATIENT
  Sex: Male
  Weight: 63.56 kg

DRUGS (2)
  1. PRISTIQ [Suspect]
     Indication: DEPRESSION
     Route: 048
     Dates: start: 20080501
  2. TRAZODONE HCL [Concomitant]
     Dosage: UNKNOWN

REACTIONS (1)
  - FACIAL PALSY [None]
